FAERS Safety Report 15866064 (Version 2)
Quarter: 2019Q1

REPORT INFORMATION
  Report Type: Spontaneous
  Country: FR (occurrence: FR)
  Receive Date: 20190125
  Receipt Date: 20190208
  Transmission Date: 20190417
  Serious: Yes (Hospitalization)
  Sender: FDA-Public Use
  Company Number: FR-AUROBINDO-AUR-APL-2019-003164

PATIENT
  Age: 28 Year
  Sex: Male
  Weight: 43 kg

DRUGS (3)
  1. PRAZEPAM ARROW [Suspect]
     Active Substance: PRAZEPAM
     Indication: WRONG PRODUCT ADMINISTERED
     Route: 048
     Dates: start: 20181215
  2. TERCIAN [Suspect]
     Active Substance: CYAMEMAZINE
     Indication: WRONG PRODUCT ADMINISTERED
     Dosage: 50 GTT DROPS
     Route: 048
     Dates: start: 20181215
  3. MIRTAZAPINE ARROW [Suspect]
     Active Substance: MIRTAZAPINE
     Indication: WRONG PRODUCT ADMINISTERED
     Dosage: 30 MILLIGRAM
     Route: 048
     Dates: start: 20181215

REACTIONS (2)
  - Somnolence [Recovered/Resolved]
  - Wrong product administered [Recovered/Resolved]

NARRATIVE: CASE EVENT DATE: 20181215
